FAERS Safety Report 15840077 (Version 26)
Quarter: 2022Q2

REPORT INFORMATION
  Report Type: Spontaneous
  Country: US (occurrence: US)
  Receive Date: 20190117
  Receipt Date: 20220526
  Transmission Date: 20220721
  Serious: Yes (Hospitalization, Other)
  Sender: FDA-Public Use
  Company Number: US-BIOMARINAP-US-2019-121554

PATIENT
  Age: 20 Month
  Sex: Female
  Weight: 20.4 kg

DRUGS (5)
  1. LARONIDASE [Suspect]
     Active Substance: LARONIDASE
     Indication: Mucopolysaccharidosis I
     Dosage: 11.6 MG, QW
     Route: 041
     Dates: end: 20210825
  2. LARONIDASE [Suspect]
     Active Substance: LARONIDASE
     Dosage: 11.6 MG, QW
     Route: 041
     Dates: start: 20181210
  3. LARONIDASE [Suspect]
     Active Substance: LARONIDASE
     Dosage: 1.16 MILLIGRAM, QW
     Route: 041
     Dates: start: 20211006
  4. LARONIDASE [Suspect]
     Active Substance: LARONIDASE
     Dosage: 5.8 MILLIGRAM, QW
     Route: 041
     Dates: start: 20211006
  5. HEPATITIS A VIRUS STRAIN HM175 ANTIGEN (FORMALDEHYDE INACTIVATED) [Suspect]
     Active Substance: HEPATITIS A VIRUS STRAIN HM175 ANTIGEN (FORMALDEHYDE INACTIVATED)
     Indication: Immunisation

REACTIONS (31)
  - Haemolytic anaemia [Not Recovered/Not Resolved]
  - Fatigue [Recovered/Resolved]
  - Graft versus host disease [Not Recovered/Not Resolved]
  - Red blood cell count decreased [Not Recovered/Not Resolved]
  - Diarrhoea haemorrhagic [Not Recovered/Not Resolved]
  - Anaphylactic reaction [Not Recovered/Not Resolved]
  - Urticaria [Not Recovered/Not Resolved]
  - Eye swelling [Not Recovered/Not Resolved]
  - Mouth swelling [Not Recovered/Not Resolved]
  - Nasal oedema [Not Recovered/Not Resolved]
  - Autism spectrum disorder [Not Recovered/Not Resolved]
  - Device related infection [Recovering/Resolving]
  - Abnormal behaviour [Recovering/Resolving]
  - Rhinorrhoea [Unknown]
  - Hypersomnia [Unknown]
  - Immune system disorder [Not Recovered/Not Resolved]
  - Insomnia [Not Recovered/Not Resolved]
  - Urinary glycosaminoglycans increased [Unknown]
  - Sleep disorder [Not Recovered/Not Resolved]
  - Enzyme level decreased [Unknown]
  - Product dose omission issue [Unknown]
  - Urticaria [Recovering/Resolving]
  - Pruritus [Not Recovered/Not Resolved]
  - Inappropriate schedule of product administration [Unknown]
  - Off label use [Unknown]
  - Skin ulcer [Not Recovered/Not Resolved]
  - Impaired healing [Not Recovered/Not Resolved]
  - Decreased activity [Recovered/Resolved]
  - COVID-19 [Recovered/Resolved]
  - Irritability [Not Recovered/Not Resolved]
  - Unevaluable event [Unknown]

NARRATIVE: CASE EVENT DATE: 20200101
